FAERS Safety Report 9305021 (Version 1)
Quarter: 2013Q2

REPORT INFORMATION
  Report Type: Spontaneous
  Country: US (occurrence: None)
  Receive Date: 20130522
  Receipt Date: 20130522
  Transmission Date: 20140414
  Serious: No
  Sender: FDA-Public Use
  Company Number: None

PATIENT
  Age: 10 Year
  Sex: Male

DRUGS (9)
  1. MERCAPTOPURINE [Suspect]
     Dates: start: 20090119, end: 20100315
  2. METHOTREXATE [Suspect]
     Dates: start: 20081211, end: 20100208
  3. AMOXICILLIN W/CLAVULANIC ACID [Concomitant]
  4. CYCLOPHOSPHAMIDE [Concomitant]
  5. ESOMEPRAZOLE [Concomitant]
  6. PARACETAMOL [Concomitant]
  7. PEGASPARGASE [Concomitant]
  8. RANITIDINE [Concomitant]
  9. SULFAMETHOXAZOLE W/TRIMETHOPRIM [Concomitant]

REACTIONS (5)
  - Drug-induced liver injury [None]
  - Sinusitis [None]
  - Acute hepatic failure [None]
  - Drug level increased [None]
  - Hepatotoxicity [None]
